FAERS Safety Report 24188176 (Version 1)
Quarter: 2024Q3

REPORT INFORMATION
  Report Type: Spontaneous
  Country: US (occurrence: US)
  Receive Date: 20240808
  Receipt Date: 20240808
  Transmission Date: 20241016
  Serious: Yes (Hospitalization)
  Sender: MYLAN
  Company Number: US-MYLANLABS-2024M1072815

PATIENT
  Age: 2 Week
  Sex: Male

DRUGS (7)
  1. AMIODARONE [Suspect]
     Active Substance: AMIODARONE
     Indication: Supraventricular tachycardia
     Dosage: UNK (CUMULATIVE DOSE: 9 MG/KG)
     Route: 065
  2. MILRINONE [Suspect]
     Active Substance: MILRINONE
     Indication: Ejection fraction decreased
     Dosage: UNK (INFUSION)
     Route: 065
  3. PROPRANOLOL [Concomitant]
     Active Substance: PROPRANOLOL HYDROCHLORIDE
     Indication: Supraventricular tachycardia
     Dosage: UNK UNK, Q6H, 2?MG/KG/DAY DIVIDED EVERY 6H
     Route: 065
  4. PROPRANOLOL [Concomitant]
     Active Substance: PROPRANOLOL HYDROCHLORIDE
     Dosage: 2 MILLIGRAM, QID, FOUR TIMES PER DAY
     Route: 048
  5. ADENOSINE [Concomitant]
     Active Substance: ADENOSINE
     Indication: Supraventricular tachycardia
     Dosage: 0.1 MILLIGRAM/KILOGRAM ONCE
     Route: 065
  6. ADENOSINE [Concomitant]
     Active Substance: ADENOSINE
     Dosage: 0.2 MILLIGRAM/KILOGRAM TWICE
     Route: 065
  7. ADENOSINE [Concomitant]
     Active Substance: ADENOSINE
     Dosage: 0.2 MILLIGRAM/KILOGRAM (BOLUSES)
     Route: 065

REACTIONS (2)
  - Drug ineffective for unapproved indication [Unknown]
  - Off label use [Unknown]
